FAERS Safety Report 6822004-1 (Version None)
Quarter: 2010Q3

REPORT INFORMATION
  Report Type: 
  Country: None (occurrence: None)
  Receive Date: 20100708
  Receipt Date: 20100628
  Transmission Date: 20110219
  Serious: Yes (Hospitalization)
  Sender: FDA-Public Use
  Company Number: JP-JNJFOC-20091003759

PATIENT
  Sex: Male
  Weight: 54 kg

DRUGS (25)
  1. REMICADE [Suspect]
     Indication: BEHCET'S SYNDROME
     Route: 042
  2. REMICADE [Suspect]
     Route: 042
  3. REMICADE [Suspect]
     Route: 042
  4. REMICADE [Suspect]
     Route: 042
  5. NEORAL [Suspect]
     Indication: BEHCET'S SYNDROME
     Route: 048
  6. NEORAL [Suspect]
     Route: 048
  7. NEORAL [Suspect]
     Route: 048
  8. NEORAL [Suspect]
     Dosage: STARTED ^BEFORE SEP-2007^
     Route: 048
  9. PREDNISOLONE [Suspect]
     Indication: BEHCET'S SYNDROME
     Route: 048
  10. PREDNISOLONE [Suspect]
     Route: 048
  11. PREDNISOLONE [Suspect]
     Route: 048
  12. PREDNISOLONE [Suspect]
     Route: 048
  13. PREDNISOLONE [Suspect]
     Route: 048
  14. PREDNISOLONE [Suspect]
     Dosage: STARTED ^BEFORE SEP-2007^
     Route: 048
  15. PREDNISOLONE [Suspect]
     Route: 048
  16. HALCION [Concomitant]
     Indication: INSOMNIA
     Dosage: STARTED ^BEFORE AUG-2008^
     Route: 048
  17. FOSAMAC [Concomitant]
     Indication: OSTEOPOROSIS
     Route: 048
  18. TIZANIDINE HCL [Concomitant]
     Indication: BACK PAIN
     Route: 048
  19. DEPAS [Concomitant]
     Indication: ANXIETY DISORDER
     Route: 048
  20. MUCOSTA [Concomitant]
     Indication: PROPHYLAXIS
     Route: 048
  21. HORIZON [Concomitant]
     Indication: INSOMNIA
     Route: 048
  22. COLCHICINE [Concomitant]
     Indication: BEHCET'S SYNDROME
     Dosage: STARTED ^BEFORE SEP-2007^
     Route: 048
  23. COTRIM [Concomitant]
     Indication: BEHCET'S SYNDROME
     Route: 048
  24. COTRIM [Concomitant]
     Indication: PROPHYLAXIS
     Route: 048
  25. VOLTAREN [Concomitant]
     Indication: BEHCET'S SYNDROME
     Route: 054

REACTIONS (4)
  - CANDIDIASIS [None]
  - MORAXELLA INFECTION [None]
  - PNEUMONIA [None]
  - PNEUMOTHORAX [None]
